FAERS Safety Report 9403543 (Version 1)
Quarter: 2013Q3

REPORT INFORMATION
  Report Type: Spontaneous
  Country: CO (occurrence: CO)
  Receive Date: 20130716
  Receipt Date: 20130716
  Transmission Date: 20140515
  Serious: Yes (Other)
  Sender: FDA-Public Use
  Company Number: CO-PFIZER INC-2013207540

PATIENT
  Age: 62 Year
  Sex: Male

DRUGS (1)
  1. SUTENT [Suspect]
     Indication: RENAL CANCER
     Dosage: UNK
     Route: 048
     Dates: start: 201202, end: 201205

REACTIONS (8)
  - Endocrine disorder [Unknown]
  - Benign neoplasm [Unknown]
  - Laryngeal disorder [Unknown]
  - Rash [Unknown]
  - Epistaxis [Unknown]
  - Blister [Unknown]
  - Alopecia [Unknown]
  - Weight decreased [Unknown]
